FAERS Safety Report 23500851 (Version 1)
Quarter: 2024Q1

REPORT INFORMATION
  Report Type: Spontaneous
  Country: US (occurrence: US)
  Receive Date: 20240208
  Receipt Date: 20240208
  Transmission Date: 20240410
  Serious: Yes (Other)
  Sender: FDA-Public Use
  Company Number: US-BEH-2024168275

PATIENT
  Sex: Male

DRUGS (6)
  1. IDELVION [Suspect]
     Active Substance: COAGULATION FACTOR IX RECOMBINANT HUMAN
     Indication: Factor IX deficiency
     Dosage: 760-912 UNIT, QW (EVERY 7 DAYS)
     Route: 042
     Dates: start: 202204
  2. IDELVION [Suspect]
     Active Substance: COAGULATION FACTOR IX RECOMBINANT HUMAN
     Indication: Factor IX deficiency
     Dosage: 760-912 UNIT, QW (EVERY 7 DAYS)
     Route: 042
     Dates: start: 202204
  3. IDELVION [Suspect]
     Active Substance: COAGULATION FACTOR IX RECOMBINANT HUMAN
     Dosage: 760-912 UNIT, PRN FOR MINOR BLEEDING
     Route: 042
     Dates: start: 202204
  4. IDELVION [Suspect]
     Active Substance: COAGULATION FACTOR IX RECOMBINANT HUMAN
     Dosage: 760-912 UNIT, PRN FOR MINOR BLEEDING
     Route: 042
     Dates: start: 202204
  5. IDELVION [Suspect]
     Active Substance: COAGULATION FACTOR IX RECOMBINANT HUMAN
     Dosage: 1520-1824 UNIT, PRN FOR MAJOR BLEEDING
     Route: 042
     Dates: start: 202204
  6. IDELVION [Suspect]
     Active Substance: COAGULATION FACTOR IX RECOMBINANT HUMAN
     Dosage: 1520-1824 UNIT, PRN FOR MAJOR BLEEDING
     Route: 042
     Dates: start: 202204

REACTIONS (2)
  - Gingival bleeding [Recovered/Resolved]
  - Mouth injury [Unknown]
